FAERS Safety Report 9128157 (Version 1)
Quarter: 2013Q1

REPORT INFORMATION
  Report Type: Spontaneous
  Country: BR (occurrence: BR)
  Receive Date: 20130228
  Receipt Date: 20130228
  Transmission Date: 20140127
  Serious: Yes (Hospitalization, Other)
  Sender: FDA-Public Use
  Company Number: BR-ELI_LILLY_AND_COMPANY-BR201302005568

PATIENT
  Age: 83 Year
  Sex: Female

DRUGS (9)
  1. FORTEO [Suspect]
     Indication: OSTEOPOROSIS
     Dosage: 20 UG, UNK
     Route: 058
     Dates: start: 201211
  2. WARFARINA [Concomitant]
     Dosage: UNK, UNKNOWN
     Route: 065
  3. SERETIDE [Concomitant]
     Dosage: UNK, UNKNOWN
     Route: 065
  4. OMEPRAZOL [Concomitant]
     Dosage: UNK, UNKNOWN
     Route: 065
  5. MOTILIUM [Concomitant]
     Dosage: UNK, UNKNOWN
     Route: 065
  6. LEVODOPA-CARBIDOPA [Concomitant]
     Dosage: UNK, UNKNOWN
     Route: 065
  7. CALDE [Concomitant]
     Dosage: UNK, UNKNOWN
     Route: 065
  8. LOSARTAN [Concomitant]
     Dosage: UNK, UNKNOWN
     Route: 065
  9. METFORMINA [Concomitant]
     Dosage: UNK, UNKNOWN
     Route: 065

REACTIONS (3)
  - Fall [Not Recovered/Not Resolved]
  - Limb injury [Not Recovered/Not Resolved]
  - Spinal fracture [Unknown]
